FAERS Safety Report 21801432 (Version 1)
Quarter: 2022Q4

REPORT INFORMATION
  Report Type: Report from Study
  Country: US (occurrence: US)
  Receive Date: 20221230
  Receipt Date: 20221230
  Transmission Date: 20230113
  Serious: No
  Sender: FDA-Public Use
  Company Number: US-ABBVIE-4220806

PATIENT
  Age: 22 Year
  Sex: Female

DRUGS (2)
  1. HUMIRA [Suspect]
     Active Substance: ADALIMUMAB
     Indication: Hidradenitis
     Dosage: CF?FORM STRENGTH 40 MILLIGRAM?SECOND DOSE ONWARDS
     Route: 058
     Dates: start: 20221118
  2. HUMIRA [Suspect]
     Active Substance: ADALIMUMAB
     Dosage: CF?FORM STRENGTH 40 MILLIGRAM?FIRST DOSE
     Route: 058
     Dates: start: 20221104, end: 20221104

REACTIONS (1)
  - Dyspnoea [Recovered/Resolved]

NARRATIVE: CASE EVENT DATE: 20221118
